FAERS Safety Report 7327179-6 (Version None)
Quarter: 2011Q1

REPORT INFORMATION
  Report Type: 
  Country: None (occurrence: None)
  Receive Date: 20110302
  Receipt Date: 20110222
  Transmission Date: 20110831
  Serious: Yes (Hospitalization)
  Sender: FDA-Public Use
  Company Number: JP-AMGEN-JPNCT2011011672

PATIENT
  Age: 61 Year
  Sex: Female
  Weight: 55 kg

DRUGS (19)
  1. PANITUMUMAB [Suspect]
     Indication: COLORECTAL CANCER METASTATIC
     Dosage: 6 MG/KG, Q2WK
     Route: 041
     Dates: start: 20101005
  2. MORPHINE HYDROCHLORIDE [Concomitant]
     Route: 048
  3. FENTANYL CITRATE [Concomitant]
     Route: 062
  4. CALCIUM LEVOFOLINATE [Suspect]
     Indication: COLORECTAL CANCER
     Route: 041
     Dates: start: 20101005, end: 20101130
  5. MYSER                              /00115501/ [Concomitant]
     Route: 062
  6. DECADRON [Concomitant]
     Route: 048
  7. OXALIPLATIN [Suspect]
     Indication: COLORECTAL CANCER
     Route: 041
     Dates: start: 20101005, end: 20101130
  8. ANTIHISTAMINES [Concomitant]
     Indication: PROPHYLAXIS
     Route: 065
  9. CORTICOSTEROIDS [Concomitant]
     Indication: PROPHYLAXIS
     Dosage: UNK
     Route: 065
  10. PARIET [Concomitant]
     Dosage: UNK
     Route: 048
  11. FLUOROURACIL [Suspect]
     Indication: COLORECTAL CANCER
     Route: 040
     Dates: start: 20101005, end: 20101130
  12. GRAN [Concomitant]
     Route: 042
  13. OXYCONTIN [Concomitant]
     Route: 048
  14. FLUOROURACIL [Suspect]
     Route: 041
     Dates: start: 20101005, end: 20101130
  15. DUROTEP TAKEDA [Concomitant]
     Route: 062
  16. MINOMYCIN [Concomitant]
     Route: 048
  17. LOCOID                             /00028601/ [Concomitant]
     Dosage: UNK
     Route: 062
  18. HIRUDOID                           /00723701/ [Concomitant]
     Route: 062
  19. EMEND                              /01627301/ [Concomitant]
     Dosage: UNK
     Route: 048

REACTIONS (7)
  - VOMITING [None]
  - WHITE BLOOD CELL COUNT DECREASED [None]
  - DECREASED APPETITE [None]
  - RASH [None]
  - NAUSEA [None]
  - PRURITUS [None]
  - CYSTITIS [None]
